FAERS Safety Report 6510026-X (Version None)
Quarter: 2009Q4

REPORT INFORMATION
  Report Type: 
  Country: None (occurrence: None)
  Receive Date: 20091222
  Receipt Date: 20091221
  Transmission Date: 20100525
  Serious: Yes (Disabling, Other)
  Sender: FDA-Public Use
  Company Number: US-WYE-H11566409

PATIENT
  Sex: Female
  Weight: 100.33 kg

DRUGS (1)
  1. TORISEL [Suspect]
     Indication: RENAL CELL CARCINOMA
     Dosage: DOSE NOT PROVIDED, FREQUENCY EVERY 2 WEEKS
     Route: 042
     Dates: start: 20081216, end: 20090623

REACTIONS (1)
  - LUNG INFILTRATION [None]
